FAERS Safety Report 10156539 (Version 1)
Quarter: 2014Q2

REPORT INFORMATION
  Report Type: Spontaneous
  Country: CA (occurrence: CA)
  Receive Date: 20140507
  Receipt Date: 20140507
  Transmission Date: 20141212
  Serious: Yes (Hospitalization)
  Sender: FDA-Public Use
  Company Number: CA-ROCHE-1394151

PATIENT
  Age: 78 Year
  Sex: Female
  Weight: 64.01 kg

DRUGS (1)
  1. AVASTIN [Suspect]
     Indication: PRODUCT USED FOR UNKNOWN INDICATION
     Dosage: FOR 157 DAYS
     Route: 051

REACTIONS (2)
  - Eye irritation [Unknown]
  - Staphylococcal infection [Unknown]
